FAERS Safety Report 6644500-2 (Version None)
Quarter: 2010Q1

REPORT INFORMATION
  Report Type: 
  Country: None (occurrence: None)
  Receive Date: 20100322
  Receipt Date: 20100215
  Transmission Date: 20100710
  Serious: Yes (Other)
  Sender: FDA-Public Use
  Company Number: GR-ELI_LILLY_AND_COMPANY-GR201002003985

PATIENT
  Age: 52 Year
  Sex: Female

DRUGS (2)
  1. LADOSE [Suspect]
     Indication: DEPRESSIVE SYMPTOM
     Dosage: 60 MG, DAILY (1/D)
     Route: 065
  2. ALPRAZOLAM [Concomitant]
     Indication: DEPRESSION
     Dosage: 1.5 MG, DAILY (1/D)
     Route: 065

REACTIONS (2)
  - EXTRAPYRAMIDAL DISORDER [None]
  - SUICIDAL IDEATION [None]
